FAERS Safety Report 4558294-8 (Version None)
Quarter: 2005Q1

REPORT INFORMATION
  Report Type: 
  Country: None (occurrence: None)
  Receive Date: 20050103
  Receipt Date: 20041027
  Transmission Date: 20050727
  Serious: Yes (Other)
  Sender: FDA-Public Use
  Company Number: 2004UW22505

PATIENT
  Age: 74 Year
  Sex: Female
  Weight: 80.739 kg

DRUGS (5)
  1. CRESTOR [Suspect]
     Indication: BLOOD CHOLESTEROL INCREASED
  2. CRESTOR [Suspect]
     Indication: BLOOD CHOLESTEROL INCREASED
     Dosage: AT LUNCH
  3. METOPROLOL [Concomitant]
  4. LEVOXYL [Concomitant]
  5. ECOTRIN [Concomitant]

REACTIONS (1)
  - ABNORMAL DREAMS [None]
